FAERS Safety Report 9277667 (Version 1)
Quarter: 2013Q2

REPORT INFORMATION
  Report Type: Spontaneous
  Country: US (occurrence: None)
  Receive Date: 20130503
  Receipt Date: 20130503
  Transmission Date: 20140414
  Serious: Yes (Other)
  Sender: FDA-Public Use
  Company Number: None

PATIENT
  Age: 59 Year
  Sex: Female
  Weight: 53.98 kg

DRUGS (11)
  1. PROLIA [Suspect]
     Indication: OSTEOPOROSIS
     Dosage: Q6MONTHS SQ
     Route: 058
  2. LORAZEPAM [Concomitant]
  3. QNASL [Concomitant]
  4. CLORKON [Concomitant]
  5. PREMPRO [Concomitant]
  6. PANTOPRAZOLE [Concomitant]
  7. ADVAIR [Concomitant]
  8. SINGULAIR [Concomitant]
  9. MIRTAZAPINE [Concomitant]
  10. LYRICA [Concomitant]
  11. NEFAZODONE [Concomitant]

REACTIONS (3)
  - Nausea [None]
  - Dizziness [None]
  - Fear of falling [None]
